FAERS Safety Report 8104398-2 (Version None)
Quarter: 2012Q1

REPORT INFORMATION
  Report Type: 
  Country: None (occurrence: None)
  Receive Date: 20120130
  Receipt Date: 20120123
  Transmission Date: 20120608
  Serious: Yes (Hospitalization)
  Sender: FDA-Public Use
  Company Number: JP-JNJFOC-20110909440

PATIENT
  Age: 77 Year
  Sex: Female

DRUGS (6)
  1. CELECOXIB [Suspect]
     Indication: BACK PAIN
     Route: 048
     Dates: start: 20110824, end: 20110920
  2. TRAMADOL HYDROCHLORIDE/ACETAMINOPHEN [Suspect]
     Indication: DEMENTIA
     Dosage: 1 TABLET PER DAY
     Route: 048
     Dates: start: 20110824, end: 20110920
  3. LYRICA [Suspect]
     Dosage: 1 PER ONE DAY
     Route: 048
     Dates: start: 20110328, end: 20110101
  4. LYRICA [Suspect]
     Indication: BACK PAIN
     Route: 048
     Dates: start: 20110824, end: 20110920
  5. TRAMADOL HYDROCHLORIDE/ACETAMINOPHEN [Suspect]
     Indication: BACK PAIN
     Dosage: 1 TABLET PER DAY
     Route: 048
     Dates: start: 20110824, end: 20110920
  6. LYRICA [Suspect]
     Dosage: 100 MG IN A DAY
     Route: 048
     Dates: start: 20110101, end: 20110823

REACTIONS (3)
  - PAIN IN EXTREMITY [None]
  - BODY TEMPERATURE INCREASED [None]
  - LOSS OF CONSCIOUSNESS [None]
